FAERS Safety Report 4649829-5 (Version None)
Quarter: 2005Q2

REPORT INFORMATION
  Report Type: 
  Country: None (occurrence: None)
  Receive Date: 20050428
  Receipt Date: 20050308
  Transmission Date: 20051028
  Serious: Yes (Death, Life-Threatening, Disabling)
  Sender: FDA-Public Use
  Company Number: OMPQ-NO-0503S-0558

PATIENT
  Age: 62 Year
  Sex: Male
  Weight: 66 kg

DRUGS (15)
  1. OMNIPAQUE 140 [Suspect]
     Indication: BILE DUCT CANCER
     Dosage: 95 ML, SINGLE DOSE, I.V.
     Route: 042
     Dates: start: 20050307, end: 20050307
  2. OMNIPAQUE 140 [Suspect]
     Indication: JAUNDICE
     Dosage: 95 ML, SINGLE DOSE, I.V.
     Route: 042
     Dates: start: 20050307, end: 20050307
  3. CYSTEINE, AMINOACETIC ACID, GLYCYRRHIZIC ACID (STRONG NEO-MINOPHAGEN C [Concomitant]
  4. CEFOTIAM HYDROCHLORIDE (PANSPORIN) [Concomitant]
  5. CLINDAMYCIN (DALACIN-S) [Concomitant]
  6. CHLORMADINONE ACETATE (PROSTAL L) [Concomitant]
  7. TAMSULOSIN HYDROCHLORIDE (HARNAL) [Concomitant]
  8. AMPICILLIN SODIUM, SULBACTAM SODIUM (UNASYN S) [Concomitant]
  9. ZANTAC [Concomitant]
  10. LIDOCAINE [Concomitant]
  11. CEFOTIAM HYDROCHLORIDE (HALOSPOR) [Concomitant]
  12. CEFMETAZOLE SODIUM (CEFMETAZON) [Concomitant]
  13. HYDROXYZINE HYDROCHLORIDE (ATARAX-P) [Concomitant]
  14. ETIZOLAM (DEPAS) [Concomitant]
  15. MECOBALAMIN (METHYCOBAL) [Concomitant]

REACTIONS (14)
  - ANAPHYLACTOID SHOCK [None]
  - CARDIAC ARREST [None]
  - CHOLANGITIS [None]
  - COMA [None]
  - DISEASE PROGRESSION [None]
  - HYPOVOLAEMIA [None]
  - HYPOXIC ENCEPHALOPATHY [None]
  - INCONTINENCE [None]
  - LIVER DISORDER [None]
  - PNEUMONIA ASPIRATION [None]
  - PROCEDURAL COMPLICATION [None]
  - RESPIRATORY ARREST [None]
  - UPPER GASTROINTESTINAL HAEMORRHAGE [None]
  - VENTRICULAR FIBRILLATION [None]
